FAERS Safety Report 10077961 (Version 2)
Quarter: 2014Q2

REPORT INFORMATION
  Report Type: Spontaneous
  Country: US (occurrence: US)
  Receive Date: 20140415
  Receipt Date: 20140416
  Transmission Date: 20141212
  Serious: No
  Sender: FDA-Public Use
  Company Number: US-009507513-1404USA005075

PATIENT
  Sex: Male

DRUGS (2)
  1. STROMECTOL [Suspect]
     Indication: ACARODERMATITIS
     Dosage: UNK
     Route: 048
     Dates: start: 20131120
  2. STROMECTOL [Suspect]
     Dosage: MUCH LARGER DOSE
     Route: 048
     Dates: start: 20131211

REACTIONS (2)
  - Drug ineffective [Unknown]
  - Drug ineffective [Unknown]
